FAERS Safety Report 17825839 (Version 2)
Quarter: 2020Q3

REPORT INFORMATION
  Report Type: Spontaneous
  Country: US (occurrence: US)
  Receive Date: 20200526
  Receipt Date: 20200827
  Transmission Date: 20201102
  Serious: Yes (Hospitalization, Other)
  Sender: FDA-Public Use
  Company Number: US-MYLANLABS-2020M1049724

PATIENT
  Age: 29 Year
  Sex: Female
  Weight: 56.82 kg

DRUGS (1)
  1. EPINEPHRINE INJECTION USP AUTO?INJECTOR [Suspect]
     Active Substance: EPINEPHRINE
     Indication: HYPERSENSITIVITY
     Dosage: UNK
     Dates: start: 20190810, end: 20190810

REACTIONS (3)
  - Pneumonia aspiration [Recovered/Resolved]
  - Device failure [Recovering/Resolving]
  - Drug ineffective [Unknown]

NARRATIVE: CASE EVENT DATE: 20190810
